FAERS Safety Report 19611664 (Version 1)
Quarter: 2021Q3

REPORT INFORMATION
  Report Type: Spontaneous
  Country: FR (occurrence: FR)
  Receive Date: 20210727
  Receipt Date: 20210727
  Transmission Date: 20211014
  Serious: Yes (Hospitalization)
  Sender: FDA-Public Use
  Company Number: FR-TEVA-2021-FR-1935821

PATIENT
  Age: 89 Year
  Sex: Male
  Weight: 82 kg

DRUGS (13)
  1. AZITHROMYCIN ANHYDROUS. [Suspect]
     Active Substance: AZITHROMYCIN ANHYDROUS
     Indication: COVID-19
     Dosage: ON DAYS 4?12
     Route: 065
  2. SPIRAMYCIN [Suspect]
     Active Substance: SPIRAMYCIN
     Indication: COVID-19
     Dosage: ON DAYS 2?4
     Route: 065
  3. CEFOTAXIME [Concomitant]
     Active Substance: CEFOTAXIME SODIUM
     Indication: EVIDENCE BASED TREATMENT
     Route: 065
  4. AMOXICILLIN. [Suspect]
     Active Substance: AMOXICILLIN
     Indication: COVID-19
     Dosage: ON DAYS 0?2
     Route: 065
  5. ENOXAPARIN [Suspect]
     Active Substance: ENOXAPARIN
     Indication: ANTICOAGULANT THERAPY
     Dosage: 16000 IU (INTERNATIONAL UNIT) DAILY; DOSAGE: (100IU/KG)
     Route: 058
  6. DEXAMETHASONE. [Suspect]
     Active Substance: DEXAMETHASONE
     Indication: COVID-19
     Dosage: 6 MILLIGRAM DAILY;
     Route: 065
  7. VITAMIN K [Concomitant]
     Active Substance: PHYTONADIONE
     Indication: INTERNATIONAL NORMALISED RATIO FLUCTUATION
     Route: 048
  8. VITAMIN K [Concomitant]
     Active Substance: PHYTONADIONE
     Route: 042
  9. BISOPROLOL [Concomitant]
     Active Substance: BISOPROLOL
     Indication: HYPERTENSION
     Route: 065
  10. FUROSEMIDE. [Concomitant]
     Active Substance: FUROSEMIDE
     Indication: HYPERTENSION
     Route: 065
  11. RAMIPRIL. [Concomitant]
     Active Substance: RAMIPRIL
     Indication: HYPERTENSION
     Route: 065
  12. WARFARIN [Suspect]
     Active Substance: WARFARIN
     Indication: ATRIAL FIBRILLATION
     Dosage: 5 MILLIGRAM DAILY;
     Route: 065
  13. WARFARIN [Suspect]
     Active Substance: WARFARIN
     Indication: CARDIAC VALVE DISEASE

REACTIONS (6)
  - Overdose [Unknown]
  - Drug ineffective [Unknown]
  - International normalised ratio increased [Recovered/Resolved]
  - Epistaxis [Recovered/Resolved]
  - Off label use [Unknown]
  - Drug interaction [Unknown]
